FAERS Safety Report 9613289 (Version 1)
Quarter: 2013Q4

REPORT INFORMATION
  Report Type: Spontaneous
  Country: US (occurrence: US)
  Receive Date: 20131010
  Receipt Date: 20131010
  Transmission Date: 20140711
  Serious: Yes (Hospitalization, Other)
  Sender: FDA-Public Use
  Company Number: US-ASTRAZENECA-2013SE73389

PATIENT
  Age: 76 Year
  Sex: Female

DRUGS (7)
  1. SYMBICORT PMDI [Suspect]
     Indication: ASTHMA
     Route: 055
  2. SYMBICORT PMDI [Suspect]
     Indication: ASTHMA
     Dosage: 80/4.5 MCG, 1 PUFF, TWO TIMES A DAY
     Route: 055
     Dates: start: 2013
  3. SINGULAIR [Concomitant]
     Indication: HYPERSENSITIVITY
     Dosage: 20 MG, DAILY, GENERIC
  4. LIPITOR [Concomitant]
     Indication: BLOOD CHOLESTEROL ABNORMAL
     Dosage: 20 MG, DAILY, GENERIC
  5. ZYRTEC [Concomitant]
     Indication: HYPERSENSITIVITY
     Dosage: 1 PRN
  6. REFRESH [Concomitant]
     Indication: DRY EYE
     Dosage: 1
     Route: 050
  7. SUSTAIN ULTRA [Concomitant]
     Indication: DRY EYE
     Dosage: 1
     Route: 050

REACTIONS (9)
  - Cataract [Unknown]
  - Onychoclasis [Unknown]
  - Skin discolouration [Unknown]
  - Dry eye [Unknown]
  - Iris disorder [Unknown]
  - Floppy iris syndrome [Unknown]
  - Eye swelling [Unknown]
  - Hypersensitivity [Unknown]
  - Off label use [Unknown]
